FAERS Safety Report 7090027-6 (Version None)
Quarter: 2010Q4

REPORT INFORMATION
  Report Type: 
  Country: None (occurrence: None)
  Receive Date: 20101109
  Receipt Date: 20101029
  Transmission Date: 20110411
  Serious: No
  Sender: FDA-Public Use
  Company Number: US-BIOGENIDEC-2010BI038359

PATIENT
  Age: 47 Year
  Sex: Male

DRUGS (4)
  1. TYSABRI [Suspect]
     Indication: MULTIPLE SCLEROSIS
     Route: 042
     Dates: start: 20061031, end: 20071003
  2. TYSABRI [Suspect]
     Route: 042
     Dates: start: 20080310, end: 20091020
  3. TYSABRI [Suspect]
     Route: 042
     Dates: start: 20100825
  4. AVONEX [Concomitant]
     Indication: MULTIPLE SCLEROSIS
     Route: 030
     Dates: start: 20020722

REACTIONS (6)
  - APHASIA [None]
  - GAIT DISTURBANCE [None]
  - MOBILITY DECREASED [None]
  - MULTIPLE SCLEROSIS [None]
  - MULTIPLE SCLEROSIS RELAPSE [None]
  - VERTIGO [None]
